FAERS Safety Report 4895154-7 (Version None)
Quarter: 2006Q1

REPORT INFORMATION
  Report Type: 
  Country: None (occurrence: None)
  Receive Date: 20060130
  Receipt Date: 20060118
  Transmission Date: 20060701
  Serious: Yes (Death)
  Sender: FDA-Public Use
  Company Number: DE-JNJFOC-20060103067

PATIENT
  Sex: Female
  Weight: 50 kg

DRUGS (2)
  1. DURAGESIC-100 [Suspect]
     Indication: PAIN
     Route: 062
  2. MORPHINE [Concomitant]
     Indication: PAIN
     Route: 048

REACTIONS (1)
  - PANCREATIC CARCINOMA [None]
